FAERS Safety Report 24352552 (Version 1)
Quarter: 2024Q3

REPORT INFORMATION
  Report Type: Spontaneous
  Country: CN (occurrence: CN)
  Receive Date: 20240923
  Receipt Date: 20240923
  Transmission Date: 20241017
  Serious: No
  Sender: ROCHE
  Company Number: CN-ROCHE-3429684

PATIENT
  Age: 67 Year
  Sex: Female
  Weight: 67.0 kg

DRUGS (6)
  1. HERCEPTIN [Suspect]
     Active Substance: TRASTUZUMAB
     Indication: Paget^s disease of nipple
     Route: 041
     Dates: start: 20230803, end: 20230808
  2. PACLITAXEL [Concomitant]
     Active Substance: PACLITAXEL
     Indication: Paget^s disease of nipple
     Route: 042
     Dates: start: 20230803, end: 20230803
  3. CIMETIDINE [Concomitant]
     Active Substance: CIMETIDINE
     Route: 042
     Dates: start: 20230802, end: 20230803
  4. ONDANSETRON HYDROCHLORIDE [Concomitant]
     Active Substance: ONDANSETRON HYDROCHLORIDE
     Route: 048
     Dates: start: 20230803, end: 20230806
  5. TROPISETRON HYDROCHLORIDE [Concomitant]
     Active Substance: TROPISETRON HYDROCHLORIDE
     Route: 042
     Dates: start: 20230803, end: 20230806
  6. CARBOPLATIN [Concomitant]
     Active Substance: CARBOPLATIN
     Indication: Paget^s disease of nipple
     Route: 042
     Dates: start: 20230803

REACTIONS (3)
  - Nausea [Recovering/Resolving]
  - Vomiting [Recovering/Resolving]
  - Dysphagia [Recovering/Resolving]

NARRATIVE: CASE EVENT DATE: 20230803
